FAERS Safety Report 20554443 (Version 2)
Quarter: 2022Q2

REPORT INFORMATION
  Report Type: Spontaneous
  Country: DK (occurrence: DK)
  Receive Date: 20220304
  Receipt Date: 20220511
  Transmission Date: 20220720
  Serious: Yes (Life-Threatening, Hospitalization, Disabling, Other)
  Sender: FDA-Public Use
  Company Number: DK-MLMSERVICE-20220221-3385701-1

PATIENT
  Age: 38 Year
  Sex: Male

DRUGS (6)
  1. DARZALEX [Suspect]
     Active Substance: DARATUMUMAB
     Indication: Precursor T-lymphoblastic lymphoma/leukaemia
     Dosage: 16 MG/KG I.V., D1 WEEKLY FOR 13 WEEKS (TILL START OF CONDITIONING)
     Route: 065
  2. NELARABINE [Suspect]
     Active Substance: NELARABINE
     Indication: Precursor T-lymphoblastic lymphoma/leukaemia
     Dosage: 1500 MG/M2, D1, 3, 5 EVERY 3 WEEKS, 4 COURSES;
     Route: 065
  3. PEGASPARGASE [Suspect]
     Active Substance: PEGASPARGASE
     Indication: Precursor T-lymphoblastic lymphoma/leukaemia
     Dosage: 1000 MG/M2 I.M., D1 EVERY 3 WEEKS, 4 COURSES;
     Route: 065
  4. DEXAMETHASONE [Suspect]
     Active Substance: DEXAMETHASONE
     Indication: Precursor T-lymphoblastic lymphoma/leukaemia
     Dosage: D14 EVERY 3 WEEKS, 4 COURSES
     Route: 065
  5. PEGFILGRASTIM [Concomitant]
     Active Substance: PEGFILGRASTIM
     Indication: Neutropenia
     Dosage: 6 MG S.C., D7 EVERY 3 WEEKS, 4 COURSES; CYCLICAL
     Route: 065
  6. CYCLOPHOSPHAMIDE [Concomitant]
     Active Substance: CYCLOPHOSPHAMIDE

REACTIONS (8)
  - Brain stem syndrome [Not Recovered/Not Resolved]
  - Nervous system disorder [Not Recovered/Not Resolved]
  - Myelosuppression [Unknown]
  - Febrile neutropenia [Unknown]
  - Peripheral sensory neuropathy [Not Recovered/Not Resolved]
  - Asthenia [Unknown]
  - Off label use [Unknown]
  - Product use in unapproved indication [Unknown]
